FAERS Safety Report 7909713-8 (Version None)
Quarter: 2011Q4

REPORT INFORMATION
  Report Type: 
  Country: None (occurrence: None)
  Receive Date: 20111111
  Receipt Date: 20110728
  Transmission Date: 20120403
  Serious: No
  Sender: FDA-Public Use
  Company Number: US-BAYER-2011-068339

PATIENT

DRUGS (1)
  1. ALEVE (CAPLET) [Suspect]
     Dosage: UNK
     Dates: start: 20110728

REACTIONS (1)
  - DRUG INEFFECTIVE [None]
